FAERS Safety Report 8989893 (Version 1)
Quarter: 2012Q4

REPORT INFORMATION
  Report Type: 
  Country: JP (occurrence: JP)
  Receive Date: 20121228
  Receipt Date: 20121228
  Transmission Date: 20130627
  Serious: Yes (Hospitalization)
  Sender: FDA-Public Use
  Company Number: JP-GLAXOSMITHKLINE-B0814534A

PATIENT
  Age: 23 Year
  Sex: Male

DRUGS (4)
  1. LAMICTAL [Suspect]
     Indication: IMPULSE-CONTROL DISORDER
     Dosage: 25MG Twice per day
     Route: 048
     Dates: start: 20120402, end: 20120423
  2. REFLEX (JAPAN) [Concomitant]
     Indication: DEPRESSION
     Dosage: 15MG Per day
     Route: 048
     Dates: start: 20120402, end: 20120408
  3. REFLEX (JAPAN) [Concomitant]
     Indication: DEPRESSION
     Dosage: 30MG Per day
     Route: 048
     Dates: start: 20120409, end: 20120423
  4. INVEGA [Concomitant]
     Indication: HALLUCINATION, AUDITORY
     Dosage: 3MG Per day
     Route: 048
     Dates: start: 20120413, end: 20120423

REACTIONS (17)
  - Stevens-Johnson syndrome [Recovered/Resolved]
  - Epidermal necrosis [Unknown]
  - Drug eruption [Unknown]
  - Cheilitis [Unknown]
  - Stomatitis [Unknown]
  - Ocular hyperaemia [Unknown]
  - Erythema of eyelid [Unknown]
  - Eye discharge [Unknown]
  - Lip erosion [Unknown]
  - Oral mucosa erosion [Unknown]
  - Lip ulceration [Unknown]
  - Mouth ulceration [Unknown]
  - Rash maculo-papular [Unknown]
  - Pyrexia [Unknown]
  - Corneal disorder [Unknown]
  - Conjunctivitis [Unknown]
  - C-reactive protein increased [Unknown]
